FAERS Safety Report 8168211 (Version 5)
Quarter: 2013Q3

REPORT INFORMATION
  Report Type: Report from Study
  Country: JP (occurrence: JP)
  Receive Date: 20111004
  Receipt Date: 20130705
  Transmission Date: 20140515
  Serious: Yes (Death, Other)
  Sender: FDA-Public Use
  Company Number: JP-BRISTOL-MYERS SQUIBB COMPANY-16114530

PATIENT
  Age: 55 Year
  Sex: Male
  Weight: 65 kg

DRUGS (6)
  1. SPRYCEL [Suspect]
     Indication: CHRONIC MYELOID LEUKAEMIA
     Dosage: 50 MG:02AUG11.100MG: 25AUG11-17SEP11.
     Route: 048
     Dates: start: 20110712, end: 20110917
  2. FRAGMIN [Suspect]
  3. IDAMYCIN [Suspect]
     Indication: CHRONIC MYELOID LEUKAEMIA
     Route: 042
     Dates: start: 20110826, end: 20110828
  4. CYLOCIDE [Suspect]
     Indication: CHRONIC MYELOID LEUKAEMIA
     Route: 042
     Dates: start: 20110826, end: 20110901
  5. METHYLPREDNISOLONE SODIUM SUCCINATE [Concomitant]
     Route: 042
     Dates: start: 20110922, end: 20110926
  6. MORPHINE HCL [Concomitant]
     Route: 042
     Dates: start: 20110921, end: 20110927

REACTIONS (4)
  - Haemothorax [Fatal]
  - Pleural effusion [Fatal]
  - Neutrophil count decreased [Unknown]
  - Neutropenic infection [Unknown]
